FAERS Safety Report 8261707-1 (Version None)
Quarter: 2012Q2

REPORT INFORMATION
  Report Type: 
  Country: None (occurrence: None)
  Receive Date: 20120405
  Receipt Date: 20120330
  Transmission Date: 20120825
  Serious: No
  Sender: FDA-Public Use
  Company Number: US-BAYER-201020821NA

PATIENT
  Age: 21 Year
  Sex: Female

DRUGS (3)
  1. YAZ [Suspect]
     Dosage: FORGOT TO TAKE 1 PILL
     Route: 048
     Dates: start: 20071001
  2. YASMIN [Suspect]
  3. DROSPIRENONE AND ETHINYL ESTRADIOL [Suspect]

REACTIONS (6)
  - ABDOMINAL PAIN UPPER [None]
  - FLATULENCE [None]
  - PREGNANCY ON ORAL CONTRACEPTIVE [None]
  - ALOPECIA [None]
  - INJURY [None]
  - PAIN [None]
